FAERS Safety Report 9548907 (Version 2)
Quarter: 2013Q4

REPORT INFORMATION
  Report Type: Spontaneous
  Country: BR (occurrence: BR)
  Receive Date: 20130924
  Receipt Date: 20131022
  Transmission Date: 20140711
  Serious: Yes (Death, Hospitalization, Other)
  Sender: FDA-Public Use
  Company Number: BR-AMGEN-BRASP2013066663

PATIENT
  Age: 56 Year
  Sex: Male
  Weight: 80 kg

DRUGS (3)
  1. ENBREL [Suspect]
     Indication: RHEUMATOID ARTHRITIS
     Dosage: 50 MG, ONCE WEEKLY
     Route: 058
     Dates: start: 201112, end: 201309
  2. ENBREL [Suspect]
     Dosage: UNK
     Route: 065
  3. INSULIN [Concomitant]
     Indication: DIABETES MELLITUS
     Dosage: UNK

REACTIONS (7)
  - Diabetes mellitus [Fatal]
  - Respiratory failure [Fatal]
  - Arthritis [Fatal]
  - Osteoarthritis [Fatal]
  - Feeling abnormal [Unknown]
  - Dyspnoea [Unknown]
  - Vomiting [Unknown]
